FAERS Safety Report 10881359 (Version 1)
Quarter: 2015Q1

REPORT INFORMATION
  Report Type: Spontaneous
  Country: FR (occurrence: FR)
  Receive Date: 20150303
  Receipt Date: 20150303
  Transmission Date: 20150721
  Serious: Yes (Hospitalization, Disabling)
  Sender: FDA-Public Use
  Company Number: PHHY2013FR108240

PATIENT
  Age: 28 Year
  Sex: Male

DRUGS (12)
  1. TRILEPTAL [Suspect]
     Active Substance: OXCARBAZEPINE
     Dosage: 600 MG, BID
     Route: 048
  2. TRILEPTAL [Suspect]
     Active Substance: OXCARBAZEPINE
     Dosage: 1650 MG, QD
     Route: 048
  3. TRILEPTAL [Suspect]
     Active Substance: OXCARBAZEPINE
     Indication: RASMUSSEN ENCEPHALITIS
     Dosage: UNK
     Route: 048
  4. URBANYL [Suspect]
     Active Substance: CLOBAZAM
     Indication: RASMUSSEN ENCEPHALITIS
     Dosage: 10 MG, TID
     Route: 048
  5. URBANYL [Suspect]
     Active Substance: CLOBAZAM
     Dosage: 15 MG, (5 MG MIDDAY/10 MG EVENING) DAILY
     Route: 048
  6. URBANYL [Suspect]
     Active Substance: CLOBAZAM
     Dosage: 20 MG, (5 MG MORNING /5 MG MIDDAY /10 MG EVENING) DAILY
     Route: 048
  7. URBANYL [Suspect]
     Active Substance: CLOBAZAM
     Dosage: 10 MG, TID
     Route: 048
  8. TRILEPTAL [Suspect]
     Active Substance: OXCARBAZEPINE
     Dosage: 600 MG, TID
     Route: 048
  9. VIMPAT [Concomitant]
     Active Substance: LACOSAMIDE
     Indication: PRODUCT USED FOR UNKNOWN INDICATION
     Dosage: 50 MG, BID
     Route: 065
     Dates: end: 201306
  10. TRILEPTAL [Suspect]
     Active Substance: OXCARBAZEPINE
     Dosage: UNK (INCREASED DOSAGE)
     Route: 048
  11. URBANYL [Suspect]
     Active Substance: CLOBAZAM
     Dosage: 25 MG, (5 MG MORNING /10 MG MIDDAY /10 MG EVENING), DAILY
     Route: 048
  12. GARDENAL [Concomitant]
     Active Substance: PHENOBARBITAL
     Indication: PRODUCT USED FOR UNKNOWN INDICATION
     Dosage: 120 MG, QD
     Route: 065

REACTIONS (1)
  - Status epilepticus [Recovered/Resolved with Sequelae]

NARRATIVE: CASE EVENT DATE: 20130527
